FAERS Safety Report 6530971-9 (Version None)
Quarter: 2010Q1

REPORT INFORMATION
  Report Type: 
  Country: None (occurrence: None)
  Receive Date: 20100108
  Receipt Date: 20090730
  Transmission Date: 20100710
  Serious: No
  Sender: FDA-Public Use
  Company Number: A0799681A

PATIENT
  Age: 53 Year
  Sex: Male

DRUGS (12)
  1. LOVAZA [Suspect]
     Dosage: 2CAP TWICE PER DAY
     Route: 048
     Dates: start: 20080101
  2. LISINOPRIL [Concomitant]
  3. DIOVAN [Concomitant]
  4. ATENOLOL [Concomitant]
  5. LIPITOR [Concomitant]
  6. CELEBREX [Concomitant]
  7. PROPOXYPHENE HCL CAP [Concomitant]
  8. SINGULAIR [Concomitant]
  9. FLONASE [Concomitant]
  10. METFORMIN HYDROCHLORIDE [Concomitant]
  11. SPIRIVA [Concomitant]
  12. ADVAIR DISKUS 100/50 [Concomitant]

REACTIONS (3)
  - ABDOMINAL DISCOMFORT [None]
  - DIARRHOEA [None]
  - MEDICATION RESIDUE [None]
